FAERS Safety Report 15509562 (Version 1)
Quarter: 2018Q4

REPORT INFORMATION
  Report Type: Spontaneous
  Country: US (occurrence: US)
  Receive Date: 20181015
  Receipt Date: 20181015
  Transmission Date: 20190205
  Serious: No
  Sender: FDA-Public Use
  Company Number: None

PATIENT
  Age: 75 Year
  Sex: Female
  Weight: 56.7 kg

DRUGS (1)
  1. REPATHA [Suspect]
     Active Substance: EVOLOCUMAB
     Indication: LOW DENSITY LIPOPROTEIN ABNORMAL
     Dosage: ?          QUANTITY:1 INJECTION(S);?
     Route: 058

REACTIONS (3)
  - Injection site pain [None]
  - Needle issue [None]
  - Product quality issue [None]

NARRATIVE: CASE EVENT DATE: 20181013
